FAERS Safety Report 16439766 (Version 1)
Quarter: 2019Q2

REPORT INFORMATION
  Report Type: Spontaneous
  Country: US (occurrence: US)
  Receive Date: 20190507
  Receipt Date: 20190507
  Transmission Date: 20190711
  Serious: Yes (Other)
  Sender: FDA-Public Use
  Company Number: None

PATIENT
  Age: 15 Year
  Sex: Male

DRUGS (8)
  1. ALBUTEROL NEB SOLN [Concomitant]
  2. OPSUMIT [Suspect]
     Active Substance: MACITENTAN
     Indication: PULMONARY ARTERIAL HYPERTENSION
     Route: 048
     Dates: start: 201712
  3. SILDENAFIL. [Suspect]
     Active Substance: SILDENAFIL
  4. UPTRAVI [Concomitant]
     Active Substance: SELEXIPAG
  5. SPIRONOLACTONE HYDROCHLOROTHIAZIDE [Concomitant]
  6. ASPIRIN. [Concomitant]
     Active Substance: ASPIRIN
  7. POTASSIUM CHLORIDE. [Concomitant]
     Active Substance: POTASSIUM CHLORIDE
  8. FUROSEMIDE. [Concomitant]
     Active Substance: FUROSEMIDE

REACTIONS (8)
  - Abdominal pain upper [None]
  - Ascites [None]
  - Hepatic lesion [None]
  - Vomiting [None]
  - Pyrexia [None]
  - Hepatic cirrhosis [None]
  - Portal hypertension [None]
  - Hypokalaemia [None]

NARRATIVE: CASE EVENT DATE: 20190423
